FAERS Safety Report 14532081 (Version 1)
Quarter: 2018Q1

REPORT INFORMATION
  Report Type: Report from Study
  Country: US (occurrence: US)
  Receive Date: 20180214
  Receipt Date: 20180214
  Transmission Date: 20180509
  Serious: Yes (Other)
  Sender: FDA-Public Use
  Company Number: PHEH2018US005078

PATIENT
  Sex: Female

DRUGS (1)
  1. GILENYA [Suspect]
     Active Substance: FINGOLIMOD HYDROCHLORIDE
     Indication: MULTIPLE SCLEROSIS
     Dosage: 0.5 MG, QOD
     Route: 048
     Dates: start: 2017

REACTIONS (6)
  - Visual impairment [Unknown]
  - Muscular weakness [Not Recovered/Not Resolved]
  - Leukopenia [Not Recovered/Not Resolved]
  - Amnesia [Unknown]
  - Prescribed underdose [Unknown]
  - Skin discolouration [Not Recovered/Not Resolved]
